FAERS Safety Report 6068903-2 (Version None)
Quarter: 2009Q1

REPORT INFORMATION
  Report Type: 
  Country: None (occurrence: None)
  Receive Date: 20090206
  Receipt Date: 20090127
  Transmission Date: 20090719
  Serious: Yes (Hospitalization)
  Sender: FDA-Public Use
  Company Number: US-ELI_LILLY_AND_COMPANY-US200806002422

PATIENT
  Sex: Female
  Weight: 84.807 kg

DRUGS (13)
  1. BYETTA [Suspect]
     Dosage: UNK, UNKNOWN
     Route: 065
     Dates: start: 20070812, end: 20080801
  2. VYTORIN [Concomitant]
  3. LISINOPRIL [Concomitant]
     Dosage: 20 MG, DAILY (1/D)
  4. METFORMIN HCL [Concomitant]
     Dosage: 500 MG, 2/D
  5. PROTONIX /01263201/ [Concomitant]
     Dosage: 20 MG, DAILY (1/D)
  6. TRICOR [Concomitant]
     Dosage: 145 MG, DAILY (1/D)
  7. ZYRTEC [Concomitant]
     Dosage: 10 MG, UNKNOWN
  8. FLUCONAZOLE [Concomitant]
     Dosage: 150 MG, UNKNOWN
  9. NAPROXEN [Concomitant]
     Dosage: 500 MG, UNKNOWN
  10. CYCLOBENZAPRINE [Concomitant]
     Dosage: 10 MG, UNKNOWN
  11. PROPOXYPHENE NAPSYLATE W/ ACETAMINOPHEN [Concomitant]
  12. PROAIR HFA [Concomitant]
  13. AMOXICILLIN SODIUM W/CLAVULANATE POTASSIUM [Concomitant]

REACTIONS (2)
  - ASPARTATE AMINOTRANSFERASE INCREASED [None]
  - PANCREATITIS [None]
